FAERS Safety Report 20134409 (Version 1)
Quarter: 2021Q4

REPORT INFORMATION
  Report Type: Spontaneous
  Country: DE (occurrence: DE)
  Receive Date: 20211201
  Receipt Date: 20211201
  Transmission Date: 20220303
  Serious: Yes (Hospitalization, Other)
  Sender: FDA-Public Use
  Company Number: DE-NOVARTISPH-NVSC2021DE271034

PATIENT
  Age: 82 Year
  Sex: Female
  Weight: 52 kg

DRUGS (12)
  1. PREDNISOLONE [Suspect]
     Active Substance: PREDNISOLONE
     Indication: Pemphigoid
     Dosage: UNK UNK, PRN
     Route: 048
     Dates: start: 20210618, end: 20210710
  2. PREDNISOLONE [Suspect]
     Active Substance: PREDNISOLONE
     Dosage: 25 MG, QD
     Route: 048
     Dates: start: 20210721
  3. BENRALIZUMAB [Suspect]
     Active Substance: BENRALIZUMAB
     Indication: Pemphigoid
     Dosage: UNK
     Route: 058
     Dates: start: 20210720, end: 20210720
  4. BENRALIZUMAB [Suspect]
     Active Substance: BENRALIZUMAB
     Dosage: UNK
     Route: 058
     Dates: start: 20210818, end: 20210818
  5. BENRALIZUMAB [Suspect]
     Active Substance: BENRALIZUMAB
     Dosage: UNK
     Route: 058
     Dates: start: 20210916, end: 20210916
  6. BENRALIZUMAB [Suspect]
     Active Substance: BENRALIZUMAB
     Dosage: UNK
     Route: 058
     Dates: start: 20211014, end: 20211014
  7. OXYCODONE [Concomitant]
     Active Substance: OXYCODONE
     Indication: Spinal compression fracture
     Dosage: 20 MG, QD
     Route: 048
     Dates: start: 20210927
  8. ALENDRONIC ACID [Concomitant]
     Active Substance: ALENDRONIC ACID
     Indication: Product used for unknown indication
     Dosage: 70 MG, QD
     Route: 048
     Dates: start: 2016
  9. CANDESARTAN [Concomitant]
     Active Substance: CANDESARTAN
     Indication: Hypertension
     Dosage: UNK MG, PRN
     Route: 048
     Dates: start: 2019
  10. MONO DEMETRIN [Concomitant]
     Indication: Anxiety
     Dosage: 2.5 MG, QD
     Route: 048
     Dates: start: 2000
  11. ALBUTEROL [Concomitant]
     Active Substance: ALBUTEROL
     Indication: Asthma
     Dosage: 1.25MG/2.5ML- 1 PUFF QD
     Route: 055
     Dates: start: 2010
  12. NALOXONE [Concomitant]
     Active Substance: NALOXONE
     Indication: Spinal compression fracture
     Dosage: 10 MG, QD
     Route: 048
     Dates: start: 20210927

REACTIONS (1)
  - Thoracic vertebral fracture [Not Recovered/Not Resolved]

NARRATIVE: CASE EVENT DATE: 20211022
